FAERS Safety Report 19822776 (Version 1)
Quarter: 2021Q3

REPORT INFORMATION
  Report Type: Spontaneous
  Country: CA (occurrence: CA)
  Receive Date: 20210913
  Receipt Date: 20210913
  Transmission Date: 20211014
  Serious: Yes (Other)
  Sender: FDA-Public Use
  Company Number: CA-SA-2021SA296638

PATIENT
  Age: 54 Year
  Sex: Female

DRUGS (2)
  1. GEMCITABINE. [Concomitant]
     Active Substance: GEMCITABINE
     Dosage: UNK
  2. DOCETAXEL. [Suspect]
     Active Substance: DOCETAXEL
     Indication: UTERINE CANCER
     Dosage: UNK
     Route: 042

REACTIONS (8)
  - Flushing [Unknown]
  - Feeling hot [Unknown]
  - Erythema [Unknown]
  - Dermatitis bullous [Unknown]
  - Chest discomfort [Unknown]
  - Urticaria [Unknown]
  - Neutropenia [Unknown]
  - Dyspnoea exertional [Unknown]
